FAERS Safety Report 24649643 (Version 2)
Quarter: 2024Q4

REPORT INFORMATION
  Report Type: Report from Study
  Country: BR (occurrence: BR)
  Receive Date: 20241121
  Receipt Date: 20241206
  Transmission Date: 20250114
  Serious: No
  Sender: BIOGEN
  Company Number: BR-BIOGEN-2024BI01290980

PATIENT
  Sex: Female
  Weight: 74 kg

DRUGS (1)
  1. TYSABRI [Suspect]
     Active Substance: NATALIZUMAB
     Indication: Multiple sclerosis
     Route: 050
     Dates: start: 2017

REACTIONS (3)
  - Optic neuritis [Unknown]
  - Central nervous system lesion [Unknown]
  - Multiple sclerosis relapse [Unknown]
